FAERS Safety Report 4831395-2 (Version None)
Quarter: 2005Q4

REPORT INFORMATION
  Report Type: 
  Country: None (occurrence: None)
  Receive Date: 20051118
  Receipt Date: 20051115
  Transmission Date: 20060501
  Serious: Yes (Other)
  Sender: FDA-Public Use
  Company Number: GB-GLAXOSMITHKLINE-B0400524A

PATIENT
  Age: 37 Year
  Sex: Female

DRUGS (3)
  1. IMIGRAN [Suspect]
     Indication: MIGRAINE
     Route: 058
     Dates: start: 20050911
  2. UNIVER [Concomitant]
  3. FLUOXETINE [Concomitant]

REACTIONS (1)
  - INTENTIONAL OVERDOSE [None]
